FAERS Safety Report 8055089-8 (Version None)
Quarter: 2011Q4

REPORT INFORMATION
  Report Type: 
  Country: None (occurrence: None)
  Receive Date: 20111216
  Receipt Date: 20110511
  Transmission Date: 20120403
  Serious: Yes (Other)
  Sender: FDA-Public Use
  Company Number: 281265USA

PATIENT
  Age: 27 Year
  Sex: Female
  Weight: 54.4316 kg

DRUGS (1)
  1. PARAGARD T 380A [Suspect]
     Indication: CONTRACEPTION
     Dosage: I.U.
     Dates: start: 20070101, end: 20110418

REACTIONS (5)
  - FATIGUE [None]
  - MENORRHAGIA [None]
  - MEDICAL DEVICE COMPLICATION [None]
  - DEVICE BREAKAGE [None]
  - MUSCLE SPASMS [None]
